FAERS Safety Report 21409722 (Version 1)
Quarter: 2022Q4

REPORT INFORMATION
  Report Type: Report from Study
  Country: US (occurrence: US)
  Receive Date: 20221005
  Receipt Date: 20221005
  Transmission Date: 20230113
  Serious: No
  Sender: FDA-Public Use
  Company Number: US-ABBVIE-4139171

PATIENT
  Sex: Female

DRUGS (1)
  1. MAVYRET [Suspect]
     Active Substance: GLECAPREVIR\PIBRENTASVIR
     Indication: Hepatitis C
     Dosage: 100- 40MG TABLET TAKE 3 TABLETS BY MOUTH ONCE DAILY FOR 28 DAYS
     Route: 048
     Dates: end: 202206

REACTIONS (2)
  - Headache [Unknown]
  - Somnolence [Unknown]
